FAERS Safety Report 11011644 (Version 1)
Quarter: 2015Q2

REPORT INFORMATION
  Report Type: Spontaneous
  Country: US (occurrence: SE)
  Receive Date: 20150410
  Receipt Date: 20150410
  Transmission Date: 20150821
  Serious: Yes (Hospitalization)
  Sender: FDA-Public Use
  Company Number: SE-FRI-1000075848

PATIENT
  Age: 25 Year
  Sex: Female

DRUGS (11)
  1. ONDANSETRON [Concomitant]
     Active Substance: ONDANSETRON
     Dosage: UNK
  2. LINACLOTIDE [Suspect]
     Active Substance: LINACLOTIDE
     Dosage: 290 MCG
  3. LINACLOTIDE [Suspect]
     Active Substance: LINACLOTIDE
     Indication: CONSTIPATION
     Dosage: 290 MCG
     Dates: start: 20141123
  4. SANDOSTATIN [Concomitant]
     Active Substance: OCTREOTIDE ACETATE
     Dosage: UNK
  5. OMEPRAZOLE. [Concomitant]
     Active Substance: OMEPRAZOLE
  6. KALEROID [Concomitant]
  7. PARAFLEX [Concomitant]
     Active Substance: CHLORZOXAZONE
     Dosage: UNK
  8. LINACLOTIDE [Suspect]
     Active Substance: LINACLOTIDE
     Dosage: UNK, EVERY 2-3 DAYS
  9. GABAPENTIN. [Concomitant]
     Active Substance: GABAPENTIN
  10. SAROTEN [Concomitant]
     Active Substance: AMITRIPTYLINE
  11. DEPOLAN [Concomitant]
     Active Substance: MORPHINE HYDROCHLORIDE

REACTIONS (3)
  - Dehydration [Not Recovered/Not Resolved]
  - Diarrhoea [Not Recovered/Not Resolved]
  - Hypokalaemia [Not Recovered/Not Resolved]

NARRATIVE: CASE EVENT DATE: 201411
